FAERS Safety Report 10746146 (Version 1)
Quarter: 2015Q1

REPORT INFORMATION
  Report Type: Spontaneous
  Country: US (occurrence: US)
  Receive Date: 20150128
  Receipt Date: 20150128
  Transmission Date: 20150721
  Serious: Yes (Other)
  Sender: FDA-Public Use
  Company Number: US-JNJFOC-20150117340

PATIENT
  Sex: Male

DRUGS (1)
  1. IMBRUVICA [Suspect]
     Active Substance: IBRUTINIB
     Indication: CHRONIC LYMPHOCYTIC LEUKAEMIA
     Route: 048
     Dates: start: 2014

REACTIONS (3)
  - Inappropriate schedule of drug administration [Unknown]
  - Cerebral haematoma [Unknown]
  - Weight decreased [Unknown]

NARRATIVE: CASE EVENT DATE: 2014
